FAERS Safety Report 15473483 (Version 1)
Quarter: 2018Q4

REPORT INFORMATION
  Report Type: Spontaneous
  Country: FR (occurrence: FR)
  Receive Date: 20181008
  Receipt Date: 20181008
  Transmission Date: 20190205
  Serious: Yes (Other)
  Sender: FDA-Public Use
  Company Number: FR-PFIZER INC-2018398372

PATIENT
  Sex: Male

DRUGS (4)
  1. PREVISCAN [FLUINDIONE] [Concomitant]
     Active Substance: FLUINDIONE
     Indication: PULMONARY EMBOLISM
     Dosage: UNK
     Dates: end: 201406
  2. SUTENT [Suspect]
     Active Substance: SUNITINIB MALATE
     Dosage: 50 MG, CYCLIC DAILY (3 WEEKS OUT OF 4)
  3. SUTENT [Suspect]
     Active Substance: SUNITINIB MALATE
     Dosage: 50 MG, CYCLIC (DAILY 4 WEEKS ON, 2 WEEKS OFF)
     Dates: start: 20110714
  4. SUTENT [Suspect]
     Active Substance: SUNITINIB MALATE
     Dosage: 37.5 MG, CYCLIC (DAILY 3 WEEKS OUT OF 4)

REACTIONS (48)
  - Tooth disorder [Unknown]
  - Gastrooesophageal reflux disease [Unknown]
  - Epigastric discomfort [Unknown]
  - Epistaxis [Unknown]
  - Faeces soft [Unknown]
  - Hair colour changes [Unknown]
  - Condition aggravated [Unknown]
  - Skin fissures [Unknown]
  - Erythema [Unknown]
  - Blister [Unknown]
  - Dry skin [Unknown]
  - Tendon pain [Unknown]
  - Glossitis [Unknown]
  - Diarrhoea [Unknown]
  - Xeroderma [Unknown]
  - Eczema [Unknown]
  - Loose tooth [Unknown]
  - Odynophagia [Unknown]
  - Lyme disease [Unknown]
  - Palmar-plantar erythrodysaesthesia syndrome [Unknown]
  - Acne [Unknown]
  - Angular cheilitis [Unknown]
  - Burning sensation [Unknown]
  - Rhinitis [Recovering/Resolving]
  - Arthralgia [Unknown]
  - Anger [Unknown]
  - Lymphadenopathy [Unknown]
  - Asthenia [Unknown]
  - Gingivitis [Unknown]
  - Erythema nodosum [Unknown]
  - Gingival bleeding [Unknown]
  - Decreased appetite [Unknown]
  - Dyspepsia [Unknown]
  - Burn oesophageal [Unknown]
  - Haemorrhoids [Unknown]
  - Abdominal pain [Unknown]
  - Impaired healing [Unknown]
  - Nasal dryness [Unknown]
  - Mouth ulceration [Unknown]
  - Dry mouth [Unknown]
  - Chest pain [Unknown]
  - Nasopharyngitis [Unknown]
  - Mucosal inflammation [Unknown]
  - Chest discomfort [Unknown]
  - Viral tonsillitis [Unknown]
  - Cheilitis [Unknown]
  - Muscle spasms [Unknown]
  - Muscle atrophy [Unknown]

NARRATIVE: CASE EVENT DATE: 20110728
